FAERS Safety Report 17105731 (Version 1)
Quarter: 2019Q4

REPORT INFORMATION
  Report Type: Spontaneous
  Country: JP (occurrence: JP)
  Receive Date: 20191203
  Receipt Date: 20191203
  Transmission Date: 20200122
  Serious: Yes (Other)
  Sender: FDA-Public Use
  Company Number: JP-TEVA-2019-JP-1146328

PATIENT
  Age: 81 Year
  Sex: Female

DRUGS (3)
  1. MYCOPHENOLATE MOFETIL. [Suspect]
     Active Substance: MYCOPHENOLATE MOFETIL
     Indication: CHOLANGITIS
     Dosage: 2000 MILLIGRAM DAILY;
     Route: 065
  2. NIVOLUMAB [Suspect]
     Active Substance: NIVOLUMAB
     Indication: NON-SMALL CELL LUNG CANCER
     Dosage: 3 MG/KG EVERY 2 WEEKS
     Route: 042
  3. METHYLPREDNISOLONE. [Suspect]
     Active Substance: METHYLPREDNISOLONE
     Indication: CHOLANGITIS
     Dosage: 2 MG/KG DAILY; 2 MG/KG DAILY FOR 2 WEEKS
     Route: 065

REACTIONS (3)
  - Liver abscess [Recovered/Resolved]
  - Cholangitis [Recovering/Resolving]
  - Drug ineffective [Unknown]
